FAERS Safety Report 15727743 (Version 1)
Quarter: 2018Q4

REPORT INFORMATION
  Report Type: Spontaneous
  Country: US (occurrence: US)
  Receive Date: 20181217
  Receipt Date: 20181217
  Transmission Date: 20190205
  Serious: No
  Sender: FDA-Public Use
  Company Number: US-PFIZER INC-2018513367

PATIENT
  Age: 71 Year
  Sex: Male

DRUGS (2)
  1. GENOTROPIN MQ [Suspect]
     Active Substance: SOMATROPIN
     Indication: BLOOD GROWTH HORMONE ABNORMAL
     Dosage: UNK, ALTERNATE DAY (EVERY OTHER DAY)
  2. GENOTROPIN MQ [Suspect]
     Active Substance: SOMATROPIN
     Dosage: 0.6 MG, DAILY

REACTIONS (11)
  - Dihydrotestosterone decreased [Unknown]
  - Haematocrit increased [Unknown]
  - Fatigue [Unknown]
  - Prostatic specific antigen increased [Unknown]
  - Drug ineffective [Unknown]
  - Blood thyroid stimulating hormone decreased [Unknown]
  - Neutrophil count increased [Unknown]
  - Vitamin B12 increased [Unknown]
  - Thyroxine free increased [Unknown]
  - Lymphocyte count decreased [Unknown]
  - Intentional product misuse [Unknown]

NARRATIVE: CASE EVENT DATE: 20181016
